FAERS Safety Report 6145439-1 (Version None)
Quarter: 2009Q2

REPORT INFORMATION
  Report Type: 
  Country: None (occurrence: None)
  Receive Date: 20090402
  Receipt Date: 20090327
  Transmission Date: 20091009
  Serious: Yes (Other)
  Sender: FDA-Public Use
  Company Number: TRP_05710_2008

PATIENT
  Sex: Male
  Weight: 97.3419 kg

DRUGS (21)
  1. RIBASPHERE [Suspect]
     Indication: HEPATITIS C
     Dosage: 1200 MG QD, ORAL
     Route: 048
     Dates: start: 20071024, end: 20080502
  2. PEG-INTRON [Suspect]
     Indication: HEPATITIS C
     Dosage: 150 UG  1X/WEEK; SUBCUTANEOUS
     Route: 058
     Dates: start: 20071024, end: 20080501
  3. ALBUTEROL [Concomitant]
  4. TIOTROPIUM [Concomitant]
  5. ATROVENT [Concomitant]
  6. METOPROLOL TARTRATE [Concomitant]
  7. FELODIPINE [Concomitant]
  8. SPIRONOLACTONE [Concomitant]
  9. ASPIRIN [Concomitant]
  10. ADVIL [Concomitant]
  11. ATARAX [Concomitant]
  12. LISINOPRIL [Concomitant]
  13. FLUTICASONE PROPIONATE [Concomitant]
  14. ZANTAC [Concomitant]
  15. ADVAIR HFA [Concomitant]
  16. SYMBICORT [Concomitant]
  17. MOMETASONE FUROATE [Concomitant]
  18. TRIHEXYPHENIDYL [Concomitant]
  19. SEROQUEL [Concomitant]
  20. HYDROCHLOROTHIAZIDE [Concomitant]
  21. SERTRA;OME [Concomitant]

REACTIONS (1)
  - OESOPHAGEAL ADENOCARCINOMA [None]
